FAERS Safety Report 14285319 (Version 2)
Quarter: 2017Q4

REPORT INFORMATION
  Report Type: Report from Study
  Country: DE (occurrence: DE)
  Receive Date: 20171214
  Receipt Date: 20171229
  Transmission Date: 20180321
  Serious: Yes (Hospitalization, Other)
  Sender: FDA-Public Use
  Company Number: DE-B.I. PHARMACEUTICALS,INC./RIDGEFIELD-2017-BI-066010

PATIENT
  Age: 48 Year
  Sex: Female
  Weight: 113 kg

DRUGS (5)
  1. NOVAMINSULFON [Suspect]
     Active Substance: METAMIZOLE
     Indication: BACK PAIN
     Route: 048
     Dates: start: 20171116, end: 20171126
  2. CEFUROXIM [Suspect]
     Active Substance: CEFUROXIME
     Indication: PYREXIA
     Route: 048
     Dates: start: 20171116, end: 20171126
  3. LISIHEXAL [Concomitant]
     Active Substance: LISINOPRIL
     Indication: HYPERTENSION
     Route: 048
     Dates: start: 201509
  4. DABIGATRAN [Suspect]
     Active Substance: DABIGATRAN
     Indication: EMBOLIC STROKE
     Route: 048
     Dates: start: 20151215
  5. PREGABALIN. [Concomitant]
     Active Substance: PREGABALIN
     Indication: FIBROMYALGIA
     Route: 048
     Dates: start: 201502

REACTIONS (3)
  - Anaphylactic reaction [Not Recovered/Not Resolved]
  - Back pain [Not Recovered/Not Resolved]
  - Neuroborreliosis [Not Recovered/Not Resolved]

NARRATIVE: CASE EVENT DATE: 20171126
